FAERS Safety Report 16789093 (Version 2)
Quarter: 2019Q3

REPORT INFORMATION
  Report Type: Spontaneous
  Country: PK (occurrence: PK)
  Receive Date: 20190910
  Receipt Date: 20190913
  Transmission Date: 20191005
  Serious: Yes (Other)
  Sender: FDA-Public Use
  Company Number: PK-AMGEN-PAKSP2019078895

PATIENT
  Age: 21 Year
  Sex: Male
  Weight: 65 kg

DRUGS (6)
  1. SULFASALAZINE. [Concomitant]
     Active Substance: SULFASALAZINE
     Dosage: 50 MILLIGRAM
     Dates: start: 201804
  2. ENBREL [Suspect]
     Active Substance: ETANERCEPT
     Indication: SPONDYLOARTHROPATHY
     Dosage: 50 MILLIGRAM, QWK
     Route: 058
     Dates: start: 20180321
  3. ENBREL [Suspect]
     Active Substance: ETANERCEPT
     Dosage: 50 MILLIGRAM, QWK
     Route: 058
     Dates: start: 20190204
  4. DELTACORT [Concomitant]
     Dosage: 5 MILLIGRAM
     Dates: start: 201804, end: 201812
  5. FOLIC ACID. [Concomitant]
     Active Substance: FOLIC ACID
     Dosage: UNK
     Dates: start: 201804
  6. SALAZODINE [Concomitant]
     Dosage: UNK
     Dates: start: 2018, end: 201810

REACTIONS (5)
  - Arthralgia [Recovered/Resolved]
  - Seronegative arthritis [Unknown]
  - Joint swelling [Recovered/Resolved]
  - Joint swelling [Unknown]
  - Arthralgia [Unknown]

NARRATIVE: CASE EVENT DATE: 201804
